FAERS Safety Report 8856928 (Version 1)
Quarter: 2012Q4

REPORT INFORMATION
  Report Type: Spontaneous
  Country: IN (occurrence: None)
  Receive Date: 20121019
  Receipt Date: 20121019
  Transmission Date: 20130627
  Serious: Yes (Life-Threatening, Hospitalization)
  Sender: FDA-Public Use
  Company Number: 2012P1060861

PATIENT
  Age: 42 Year
  Sex: Male

DRUGS (10)
  1. LIDOCAINE (NO PREF. NAME) [Suspect]
     Route: 031
  2. LIDOCAINE (NO PREF. NAME) [Suspect]
     Route: 031
  3. BUPIVACAINE (NO PREF. NAME) [Suspect]
     Route: 031
  4. BUPIVACAINE (NO PREF. NAME) [Suspect]
     Route: 016
  5. METFORMIN [Concomitant]
  6. GLYBURIDE [Concomitant]
  7. PIOGLITAZONE [Concomitant]
  8. INDAPAMIDE [Concomitant]
  9. TRIAMTERENE [Concomitant]
  10. BENZTHIAZIDE [Concomitant]

REACTIONS (10)
  - Feeling abnormal [None]
  - Dyspnoea [None]
  - Increased bronchial secretion [None]
  - Oxygen saturation decreased [None]
  - Peripheral coldness [None]
  - Pulse abnormal [None]
  - Unresponsive to stimuli [None]
  - Respiratory arrest [None]
  - Grand mal convulsion [None]
  - Ventricular hypokinesia [None]
